FAERS Safety Report 23961411 (Version 1)
Quarter: 2024Q2

REPORT INFORMATION
  Report Type: Spontaneous
  Country: US (occurrence: US)
  Receive Date: 20240611
  Receipt Date: 20240611
  Transmission Date: 20240716
  Serious: Yes (Other)
  Sender: FDA-Public Use
  Company Number: None

PATIENT
  Sex: Female

DRUGS (4)
  1. GEMCITABINE [Suspect]
     Active Substance: GEMCITABINE
     Indication: Metastases to peritoneum
     Dosage: EVERY OTHER WEEK
  2. TENOFOVIR ALAFENAMIDE [Concomitant]
     Active Substance: TENOFOVIR ALAFENAMIDE
     Indication: Chronic hepatitis B
  3. MITOMYCIN [Concomitant]
     Active Substance: MITOMYCIN
     Indication: Metastases to peritoneum
     Dosage: OVER THE ENTIRE 90-MIN PERFUSION PERIOD
     Route: 033
  4. CISPLATIN [Concomitant]
     Active Substance: CISPLATIN
     Indication: Metastases to peritoneum
     Dosage: DURING THE LATTER 60 MIN.

REACTIONS (2)
  - Thrombocytopenia [Unknown]
  - Fatigue [Unknown]
